FAERS Safety Report 8832878 (Version 1)
Quarter: 2012Q4

REPORT INFORMATION
  Report Type: Spontaneous
  Country: US (occurrence: None)
  Receive Date: 20121009
  Receipt Date: 20121009
  Transmission Date: 20130627
  Serious: No
  Sender: FDA-Public Use
  Company Number: None

PATIENT
  Age: 56 Year
  Sex: Female
  Weight: 66.68 kg

DRUGS (2)
  1. CYMBALTA 30 MG LILLY [Suspect]
     Indication: DEPRESSION
     Dosage: 30 mg 1 x day po
     Route: 048
     Dates: start: 20100228, end: 20121008
  2. CYMBALTA 30 MG LILLY [Suspect]
     Indication: PAIN
     Dosage: 30 mg 1 x day po
     Route: 048
     Dates: start: 20100228, end: 20121008

REACTIONS (1)
  - Neck pain [None]
